FAERS Safety Report 19270129 (Version 2)
Quarter: 2021Q3

REPORT INFORMATION
  Report Type: Spontaneous
  Country: US (occurrence: US)
  Receive Date: 20210518
  Receipt Date: 20210810
  Transmission Date: 20211014
  Serious: No
  Sender: FDA-Public Use
  Company Number: US-PFIZER INC-2021424018

PATIENT
  Age: 45 Year
  Sex: Female

DRUGS (1)
  1. XELJANZ XR [Suspect]
     Active Substance: TOFACITINIB CITRATE
     Indication: RHEUMATOID ARTHRITIS
     Dosage: 11 MG, DAILY
     Route: 048
     Dates: start: 202104

REACTIONS (6)
  - Depressed mood [Unknown]
  - Back pain [Recovered/Resolved]
  - Arthritis [Recovered/Resolved]
  - Tension [Recovered/Resolved]
  - Condition aggravated [Unknown]
  - Discouragement [Unknown]

NARRATIVE: CASE EVENT DATE: 202104
